FAERS Safety Report 7943530-8 (Version None)
Quarter: 2011Q4

REPORT INFORMATION
  Report Type: 
  Country: None (occurrence: None)
  Receive Date: 20111128
  Receipt Date: 20111117
  Transmission Date: 20120403
  Serious: Yes (Hospitalization, Other)
  Sender: FDA-Public Use
  Company Number: PHHY2011JP101968

PATIENT
  Age: 55 Year
  Sex: Female

DRUGS (2)
  1. AMLODIPINE [Suspect]
     Dosage: 140 MG, UNK
  2. OLMESARTAN MEDOXOMIL [Suspect]
     Dosage: 180 MG, UNK

REACTIONS (6)
  - ACID BASE BALANCE ABNORMAL [None]
  - HYPOTENSION [None]
  - DRUG LEVEL INCREASED [None]
  - ELECTROLYTE IMBALANCE [None]
  - RENAL DISORDER [None]
  - TOXICITY TO VARIOUS AGENTS [None]
